FAERS Safety Report 6464808-3 (Version None)
Quarter: 2009Q4

REPORT INFORMATION
  Report Type: 
  Country: None (occurrence: None)
  Receive Date: 20091201
  Receipt Date: 20091130
  Transmission Date: 20100525
  Serious: Yes (Death, Hospitalization)
  Sender: FDA-Public Use
  Company Number: US-WYE-H12128809

PATIENT
  Sex: Male
  Weight: 99.6 kg

DRUGS (17)
  1. TORISEL [Suspect]
     Indication: MULTIPLE MYELOMA
     Dosage: 25 MG; DAYS 1, 8, 15, 22, 29 Q35
     Route: 042
     Dates: start: 20091028, end: 20091104
  2. ACYCLOVIR [Concomitant]
     Route: 048
  3. ACETYLSALICYLIC ACID SRT [Concomitant]
     Route: 048
  4. FOLIC ACID [Concomitant]
     Route: 048
  5. MAGNESIUM OXIDE [Concomitant]
     Route: 048
  6. VITAMINS NOS [Concomitant]
     Route: 048
  7. OMEPRAZOLE [Concomitant]
     Route: 048
  8. VITAMIN B COMPLEX CAP [Concomitant]
     Route: 048
  9. ERGOCALCIFEROL [Concomitant]
     Dosage: 1 MCG QD
     Route: 048
  10. BUPROPION HYDROCHLORIDE [Concomitant]
     Indication: DEPRESSION
     Route: 048
  11. SIMVASTATIN [Concomitant]
     Indication: HYPERLIPIDAEMIA
     Route: 048
  12. PREDNISOLONE ACETATE [Concomitant]
     Dosage: 0.12% DROP SUSP/ 1 DROP OU BID
     Route: 047
  13. STANNOUS FLUORIDE [Concomitant]
     Dosage: RINSE QHS; BRUSH ON TEETH AFTER LAST MOUTH TREATMENT
     Route: 048
  14. DEXAMETHASONE TAB [Concomitant]
     Dosage: 20 MG; DAY OF AND DAY AFTER VELCADE
     Route: 048
  15. ZOLPIDEM TARTRATE [Concomitant]
     Route: 048
  16. SULFAMETHOXAZOLE AND TRIMETHOPRIM [Concomitant]
     Dosage: NOT PROVIDED
     Route: 065
  17. BORTEZOMIB [Suspect]
     Indication: MULTIPLE MYELOMA
     Dosage: 1.6 MG/M^2; DAYS 1, 8, 15, 22, 29 Q35
     Route: 042
     Dates: start: 20091028, end: 20091104

REACTIONS (5)
  - AMYLOIDOSIS [None]
  - BACTERIAL INFECTION [None]
  - INFLUENZA [None]
  - PNEUMONIA [None]
  - PULMONARY ALVEOLAR HAEMORRHAGE [None]
